FAERS Safety Report 10236359 (Version 1)
Quarter: 2014Q2

REPORT INFORMATION
  Report Type: Spontaneous
  Country: US (occurrence: US)
  Receive Date: 20140613
  Receipt Date: 20140613
  Transmission Date: 20141212
  Serious: No
  Sender: FDA-Public Use
  Company Number: US-BAYER-2014-089155

PATIENT
  Age: 51 Year
  Sex: Female

DRUGS (1)
  1. CLIMARA PRO [Suspect]
     Dosage: UNK
     Route: 062
     Dates: start: 20140603

REACTIONS (4)
  - Vomiting [None]
  - Chest pain [None]
  - Heart rate increased [None]
  - Product adhesion issue [None]
